FAERS Safety Report 10012106 (Version 1)
Quarter: 2014Q1

REPORT INFORMATION
  Report Type: Spontaneous
  Country: US (occurrence: None)
  Receive Date: 20140312
  Receipt Date: 20140312
  Transmission Date: 20141002
  Serious: Yes (Hospitalization)
  Sender: FDA-Public Use
  Company Number: B0975659A

PATIENT
  Age: 25 Year
  Sex: Male

DRUGS (9)
  1. LAMIVUDINE-HIV [Suspect]
     Indication: HIV INFECTION
  2. STAVUDINE [Suspect]
     Indication: HIV INFECTION
  3. NEVIRAPINE [Suspect]
     Indication: HIV INFECTION
  4. TENOFOVIR (FORMULATION UNKNOWN) (TENOFOVIR) [Suspect]
     Indication: VIROLOGIC FAILURE
  5. LOPINAVIR + RITONAVIR [Suspect]
     Indication: VIROLOGIC FAILURE
  6. ISONIAZID [Concomitant]
  7. RIFAMPICIN [Concomitant]
  8. ETHAMBUTOL [Concomitant]
  9. PYRAZINAMIDE [Concomitant]

REACTIONS (2)
  - Immune reconstitution inflammatory syndrome [None]
  - Molluscum contagiosum [None]
